FAERS Safety Report 25730617 (Version 1)
Quarter: 2025Q3

REPORT INFORMATION
  Report Type: Spontaneous
  Country: CN (occurrence: CN)
  Receive Date: 20250827
  Receipt Date: 20250827
  Transmission Date: 20251021
  Serious: Yes (Death, Other)
  Sender: AMGEN
  Company Number: CN-AMGEN-CHNSP2025166684

PATIENT

DRUGS (3)
  1. XGEVA [Suspect]
     Active Substance: DENOSUMAB
     Indication: Metastases to bone
     Dosage: 120 MILLIGRAM, Q4WK (THREE CYCLES) (UNTIL WEEK 13)
     Route: 058
  2. CALCIUM [Concomitant]
     Active Substance: CALCIUM
     Indication: Mineral supplementation
     Dosage: }/=500 MILLIGRAM, QD
     Route: 065
  3. VITAMIN D [Concomitant]
     Active Substance: VITAMIN D NOS
     Indication: Vitamin supplementation
     Dosage: }/=400 U, QD

REACTIONS (19)
  - Adverse event [Fatal]
  - Disease progression [Unknown]
  - White blood cell count decreased [Unknown]
  - Neutrophil count decreased [Unknown]
  - Aspartate aminotransferase increased [Unknown]
  - Anaemia [Unknown]
  - Platelet count decreased [Unknown]
  - Pathological fracture [Unknown]
  - Metastases to bone [Unknown]
  - Alanine aminotransferase increased [Unknown]
  - Blood parathyroid hormone increased [Unknown]
  - Hypertriglyceridaemia [Unknown]
  - Urinary tract infection [Unknown]
  - Drug ineffective [Unknown]
  - Hypocalcaemia [Unknown]
  - Drug specific antibody present [Unknown]
  - Bone disorder [Unknown]
  - Treatment noncompliance [Unknown]
  - Fracture [Unknown]
